FAERS Safety Report 10190952 (Version 1)
Quarter: 2014Q2

REPORT INFORMATION
  Report Type: Spontaneous
  Country: US (occurrence: None)
  Receive Date: 20140521
  Receipt Date: 20140521
  Transmission Date: 20141212
  Serious: Yes (Life-Threatening, Hospitalization)
  Sender: FDA-Public Use
  Company Number: None

PATIENT
  Age: 63 Year
  Sex: Female
  Weight: 69.2 kg

DRUGS (10)
  1. RECLAST 5 MG/100ML [Suspect]
     Indication: OSTEOPOROSIS
     Dosage: 5 MG YEARLY INTRAVENOUS
     Route: 042
     Dates: start: 20130301, end: 20140328
  2. RANOLAZINE [Concomitant]
  3. METOPROLOL [Concomitant]
  4. ATORVASTATIN [Concomitant]
  5. ASPIRIN [Concomitant]
  6. OMEPRAZOLE [Concomitant]
  7. CALCIUM PLUS D [Concomitant]
  8. ZOFRAN [Concomitant]
  9. NITROGLYCERIN [Concomitant]
  10. TAMOXIFEN [Concomitant]

REACTIONS (2)
  - Renal failure [None]
  - Feeling abnormal [None]
